FAERS Safety Report 6098784-2 (Version None)
Quarter: 2009Q1

REPORT INFORMATION
  Report Type: 
  Country: None (occurrence: None)
  Receive Date: 20090302
  Receipt Date: 20090217
  Transmission Date: 20090719
  Serious: Yes (Hospitalization, Other)
  Sender: FDA-Public Use
  Company Number: ES-GENENTECH-278009

PATIENT
  Age: 33 Year
  Sex: Female

DRUGS (1)
  1. AVASTIN [Suspect]
     Indication: MYOPIA
     Dosage: UNK UNK, UNKNOWN
     Route: 031

REACTIONS (2)
  - HYPOPYON [None]
  - OCULAR HYPERTENSION [None]
